FAERS Safety Report 5558896-6 (Version None)
Quarter: 2007Q4

REPORT INFORMATION
  Report Type: 
  Country: None (occurrence: None)
  Receive Date: 20071214
  Receipt Date: 20070907
  Transmission Date: 20080405
  Serious: No
  Sender: FDA-Public Use
  Company Number: US-ABBOTT-07P-163-0416853-00

PATIENT
  Sex: Male
  Weight: 100 kg

DRUGS (4)
  1. HUMIRA [Suspect]
     Indication: PSORIATIC ARTHROPATHY
     Route: 058
     Dates: start: 20061001
  2. ALLOPURINOL [Concomitant]
     Indication: GOUT
     Route: 048
  3. ALLOPURINOL [Concomitant]
     Indication: PROPHYLAXIS
  4. DICLOFENAC [Concomitant]
     Indication: PAIN
     Route: 048

REACTIONS (2)
  - PAIN [None]
  - PROCEDURAL COMPLICATION [None]
